FAERS Safety Report 8916354 (Version 1)
Quarter: 2012Q4

REPORT INFORMATION
  Report Type: 
  Country: JP (occurrence: JP)
  Receive Date: 20121120
  Receipt Date: 20121120
  Transmission Date: 20130627
  Serious: Yes (Other)
  Sender: FDA-Public Use
  Company Number: JP-009507513-2012SP034973

PATIENT
  Age: 60 Year
  Sex: Male
  Weight: 52 kg

DRUGS (13)
  1. PEGINTRON [Suspect]
     Indication: CHRONIC HEPATITIS C
     Dosage: 1.5 Microgram per kilogram, QW
     Route: 058
     Dates: start: 20120413, end: 20120504
  2. PEGINTRON [Suspect]
     Dosage: 0.75 Microgram per kilogram, QW
     Route: 058
     Dates: start: 20120511, end: 20120518
  3. REBETOL [Suspect]
     Indication: HEPATITIS C
     Dosage: 600 mg, QD
     Route: 048
     Dates: start: 20120413, end: 20120510
  4. REBETOL [Suspect]
     Dosage: 200 mg, QD
     Route: 048
     Dates: start: 20120511, end: 20120518
  5. TELAVIC [Suspect]
     Indication: HEPATITIS C
     Dosage: 2250 mg, QD
     Route: 048
     Dates: start: 20120414, end: 20120514
  6. TELAVIC [Suspect]
     Dosage: 1500 mg, QD
     Route: 048
     Dates: start: 20120515, end: 20120518
  7. URDENACIN [Concomitant]
     Indication: CHRONIC HEPATITIS C
     Dosage: FORMULATION: POR
     Route: 048
  8. REZALTAS [Concomitant]
     Indication: HYPERTENSION
     Dosage: 1 Dosage form per day
     Route: 048
  9. EQUA [Concomitant]
     Indication: DIABETES MELLITUS
     Dosage: 100mg,qd
     Route: 048
  10. LENDORMIN [Concomitant]
     Indication: INSOMNIA
     Dosage: 0.25mg,qd
     Route: 048
  11. EPADEL [Concomitant]
     Indication: HYPERLIPIDAEMIA
     Dosage: 1800 mg, qd
     Route: 048
  12. PARIET [Concomitant]
     Indication: GASTROOESOPHAGEAL REFLUX DISEASE
     Dosage: 10 mg, qd
     Route: 048
  13. HARNAL [Concomitant]
     Indication: BENIGN PROSTATIC HYPERPLASIA
     Dosage: o0.2 mg, qd
     Route: 048

REACTIONS (4)
  - Blood urea increased [Recovered/Resolved]
  - Blood uric acid increased [Recovered/Resolved]
  - Blood creatinine increased [Recovered/Resolved]
  - Haemoglobin decreased [Recovered/Resolved]
